FAERS Safety Report 22372680 (Version 2)
Quarter: 2023Q4

REPORT INFORMATION
  Report Type: Report from Study
  Country: US (occurrence: US)
  Receive Date: 20230526
  Receipt Date: 20231023
  Transmission Date: 20240109
  Serious: No
  Sender: FDA-Public Use
  Company Number: US-PFIZER INC-US-GBT-018656

PATIENT
  Age: 7 Year
  Sex: Male

DRUGS (2)
  1. OXBRYTA [Suspect]
     Active Substance: VOXELOTOR
     Indication: Sickle cell disease
     Dosage: 900 MG, DAILY (300MG TAB FOR ORAL SUSPENSION, DISSOLVE 3 TABS IN 15 ML CLEAR LIQUID)
     Route: 048
     Dates: start: 202207
  2. OXBRYTA [Suspect]
     Active Substance: VOXELOTOR
     Dosage: 900 MG, DAILY (300MG TABLET FOR ORAL SUSPENSION, DISSOLVE 3 TABLETS IN 15ML CLEAR LIQUID)
     Route: 048
     Dates: start: 202207

REACTIONS (2)
  - Nasopharyngitis [Not Recovered/Not Resolved]
  - Haemoglobin decreased [Unknown]
